FAERS Safety Report 8934682 (Version 2)
Quarter: 2013Q1

REPORT INFORMATION
  Report Type: Spontaneous
  Country: US (occurrence: US)
  Receive Date: 20121129
  Receipt Date: 20130108
  Transmission Date: 20140127
  Serious: Yes (Death)
  Sender: FDA-Public Use
  Company Number: US-CELGENEUS-163-21880-12113437

PATIENT
  Age: 42 Year
  Sex: Male

DRUGS (3)
  1. REVLIMID [Suspect]
     Indication: MYELODYSPLASTIC SYNDROME
     Dosage: 5 MILLIGRAM
     Route: 048
     Dates: start: 20121020, end: 20121024
  2. REVLIMID [Suspect]
     Indication: T-CELL LYMPHOMA
  3. DECADRON [Concomitant]
     Indication: T-CELL LYMPHOMA
     Dosage: 10 MILLIGRAM
     Route: 041
     Dates: start: 20121013

REACTIONS (2)
  - Myelodysplastic syndrome [Fatal]
  - T-cell lymphoma [Fatal]
